FAERS Safety Report 15763892 (Version 10)
Quarter: 2019Q3

REPORT INFORMATION
  Report Type: Report from Study
  Country: None (occurrence: IL)
  Receive Date: 20181227
  Receipt Date: 20190710
  Transmission Date: 20191004
  Serious: Yes (Other)
  Sender: FDA-Public Use
  Company Number: IL-ABBVIE-18S-082-2592083-00

PATIENT
  Age: 84 Year
  Sex: Female

DRUGS (6)
  1. DUODOPA [Suspect]
     Active Substance: CARBIDOPA\LEVODOPA
     Dosage: CURRENT MD 10 ML, CD- 3.3 ML/ HOUR,CURRENT ED- 1.7 ML
     Route: 050
     Dates: start: 2018
  2. DUODOPA [Suspect]
     Active Substance: CARBIDOPA\LEVODOPA
     Indication: PARKINSON^S DISEASE
     Dosage: MD 10ML, CD3ML/HOUR, ,ED 1.5ML
     Route: 050
     Dates: start: 20181128, end: 2018
  3. MIRO (MIRTAZAPINE) [Suspect]
     Active Substance: MIRTAZAPINE
     Indication: ANTICIPATORY ANXIETY
     Route: 065
  4. DUODOPA [Suspect]
     Active Substance: CARBIDOPA\LEVODOPA
     Dosage: CURRENT MD- 10 ML, CD 3.0 ML/ HOUR,CURRENT ED- 1.5 ML
     Route: 050
     Dates: start: 2018, end: 2018
  5. DUODOPA [Suspect]
     Active Substance: CARBIDOPA\LEVODOPA
     Dosage: CURRENT MD- 12 ML, CR- 3.3 ML/ HOUR, CURRENT ED- 1.7 ML
     Route: 050
  6. CLONEX (CLONAZEPAM) [Suspect]
     Active Substance: CLONAZEPAM
     Indication: PRODUCT USED FOR UNKNOWN INDICATION
     Route: 065

REACTIONS (18)
  - Chest injury [Unknown]
  - Tremor [Recovered/Resolved]
  - On and off phenomenon [Unknown]
  - Pain [Unknown]
  - Stoma site hypergranulation [Unknown]
  - Tremor [Not Recovered/Not Resolved]
  - Nasopharyngitis [Unknown]
  - Stoma site pain [Unknown]
  - Malaise [Unknown]
  - Gait disturbance [Unknown]
  - Fall [Unknown]
  - Somnolence [Unknown]
  - Anxiety [Unknown]
  - Nasal congestion [Unknown]
  - Stress [Unknown]
  - Dizziness [Unknown]
  - Head injury [Unknown]
  - Tremor [Unknown]

NARRATIVE: CASE EVENT DATE: 2018
